FAERS Safety Report 17807050 (Version 2)
Quarter: 2021Q2

REPORT INFORMATION
  Report Type: Report from Study
  Country: IT (occurrence: IT)
  Receive Date: 20200520
  Receipt Date: 20210617
  Transmission Date: 20210716
  Serious: Yes (Other)
  Sender: FDA-Public Use
  Company Number: IT-KYOWAKIRIN-2020BKK008059

PATIENT

DRUGS (1)
  1. BUROSUMAB [Suspect]
     Active Substance: BUROSUMAB
     Indication: HEREDITARY HYPOPHOSPHATAEMIC RICKETS
     Dosage: UNK
     Route: 065

REACTIONS (3)
  - Non-cardiac chest pain [Recovered/Resolved]
  - Electrocardiogram repolarisation abnormality [Unknown]
  - Chest pain [Unknown]

NARRATIVE: CASE EVENT DATE: 20200506
